FAERS Safety Report 7554977-6 (Version None)
Quarter: 2011Q2

REPORT INFORMATION
  Report Type: 
  Country: None (occurrence: None)
  Receive Date: 20110617
  Receipt Date: 20110609
  Transmission Date: 20111010
  Serious: Yes (Hospitalization)
  Sender: FDA-Public Use
  Company Number: US-JNJFOC-20091204296

PATIENT
  Sex: Male
  Weight: 51.26 kg

DRUGS (11)
  1. LISINOPRIL [Concomitant]
     Indication: CARDIAC FAILURE CONGESTIVE
     Route: 048
     Dates: start: 20030101
  2. XANAX [Concomitant]
     Indication: ANXIETY
     Dosage: AS NEEDED
     Route: 048
     Dates: start: 20050101
  3. MOTRIN [Suspect]
     Indication: ILL-DEFINED DISORDER
     Route: 048
  4. MORPHINE [Concomitant]
     Indication: GROIN PAIN
  5. DURAGESIC-100 [Suspect]
     Indication: PAIN
     Route: 062
     Dates: start: 20050101
  6. TOPROL-XL [Concomitant]
     Indication: CARDIAC FAILURE CONGESTIVE
     Route: 048
     Dates: start: 20030101
  7. DURAGESIC-100 [Suspect]
     Indication: CEREBRAL DISORDER
     Route: 062
     Dates: start: 20050101
  8. SPIRONOLACTONE [Concomitant]
     Indication: CARDIAC FAILURE CONGESTIVE
     Route: 048
     Dates: start: 20030101
  9. MORPHINE [Concomitant]
     Indication: ABDOMINAL PAIN UPPER
  10. ASPIRIN [Concomitant]
     Indication: CARDIAC FAILURE CONGESTIVE
     Route: 048
     Dates: start: 20030101
  11. TRIAZOLAM [Concomitant]
     Indication: SLEEP DISORDER THERAPY
     Route: 048
     Dates: start: 20050101

REACTIONS (4)
  - DRUG INEFFECTIVE [None]
  - ARTERIAL HAEMORRHAGE [None]
  - APPLICATION SITE PAIN [None]
  - FEELING ABNORMAL [None]
